FAERS Safety Report 23891835 (Version 1)
Quarter: 2024Q2

REPORT INFORMATION
  Report Type: Spontaneous
  Country: US (occurrence: None)
  Receive Date: 20240524
  Receipt Date: 20240524
  Transmission Date: 20240715
  Serious: No
  Sender: FDA-Public Use
  Company Number: US-ROCHE-3417213

PATIENT

DRUGS (8)
  1. ACTEMRA [Suspect]
     Active Substance: TOCILIZUMAB
     Indication: Product used for unknown indication
     Route: 065
  2. CALCIUM CITRATE [Concomitant]
     Active Substance: CALCIUM CITRATE
  3. ESTER C (UNITED STATES) [Concomitant]
  4. GLUCOSAMINE CHONDROITIN MSM [Concomitant]
  5. HERBALS\TURMERIC [Concomitant]
     Active Substance: HERBALS\TURMERIC
  6. MENAQUINONE 6 [Concomitant]
     Active Substance: MENAQUINONE 6
  7. COENZYME Q10 [Concomitant]
     Active Substance: DIETARY SUPPLEMENT\UBIDECARENONE
  8. COLLAGEN PEPTIDE [Concomitant]

REACTIONS (2)
  - Rash pruritic [Unknown]
  - Urticaria [Unknown]
